FAERS Safety Report 16824470 (Version 3)
Quarter: 2019Q4

REPORT INFORMATION
  Report Type: Spontaneous
  Country: US (occurrence: US)
  Receive Date: 20190918
  Receipt Date: 20191007
  Transmission Date: 20200122
  Serious: Yes (Other)
  Sender: FDA-Public Use
  Company Number: US-PFIZER INC-2019399868

PATIENT
  Age: 29 Year
  Sex: Female

DRUGS (3)
  1. DEPO-MEDROL [Suspect]
     Active Substance: METHYLPREDNISOLONE ACETATE
     Indication: ROTATOR CUFF SYNDROME
     Dosage: 80 MG, (INJECTION IN JOINT OF SHOULDER)
     Route: 014
     Dates: start: 20190911
  2. MARCAINE [BUPIVACAINE HYDROCHLORIDE] [Concomitant]
     Dosage: UNK
     Dates: start: 20190911
  3. LIDOCAINE. [Concomitant]
     Active Substance: LIDOCAINE
     Dosage: UNK
     Dates: start: 20190911

REACTIONS (7)
  - Product use in unapproved indication [Unknown]
  - Nausea [Recovering/Resolving]
  - Vision blurred [Recovering/Resolving]
  - Malaise [Unknown]
  - Visual impairment [Unknown]
  - Dizziness [Recovering/Resolving]
  - Off label use [Unknown]

NARRATIVE: CASE EVENT DATE: 201909
